FAERS Safety Report 7943655-7 (Version None)
Quarter: 2011Q4

REPORT INFORMATION
  Report Type: 
  Country: None (occurrence: None)
  Receive Date: 20111128
  Receipt Date: 20111124
  Transmission Date: 20120403
  Serious: Yes (Life-Threatening, Hospitalization)
  Sender: FDA-Public Use
  Company Number: UA-B.I. PHARMACEUTICALS,INC./RIDGEFIELD-2011-AP-00667AP

PATIENT
  Sex: Female

DRUGS (1)
  1. MELOXICAM [Suspect]
     Indication: SPINAL OSTEOARTHRITIS
     Dosage: 15 MG
     Route: 030
     Dates: start: 20111122, end: 20111122

REACTIONS (7)
  - LOSS OF CONSCIOUSNESS [None]
  - ANAPHYLACTIC SHOCK [None]
  - LARYNGEAL OEDEMA [None]
  - PUPILLARY LIGHT REFLEX TESTS ABNORMAL [None]
  - BLOOD PRESSURE DECREASED [None]
  - ASTHENIA [None]
  - RESPIRATORY DISTRESS [None]
